FAERS Safety Report 19137629 (Version 1)
Quarter: 2021Q2

REPORT INFORMATION
  Report Type: Spontaneous
  Country: JP (occurrence: JP)
  Receive Date: 20210415
  Receipt Date: 20210415
  Transmission Date: 20210717
  Serious: Yes (Other)
  Sender: FDA-Public Use
  Company Number: JP-TEVA-2021-JP-1900037

PATIENT
  Age: 65 Year
  Sex: Female

DRUGS (3)
  1. AMLODIPINE [Suspect]
     Active Substance: AMLODIPINE BESYLATE
     Indication: PRODUCT USED FOR UNKNOWN INDICATION
     Route: 065
  2. DIAMINODIPHENYLSULFONE [DAPSONE] [Suspect]
     Active Substance: DAPSONE
     Indication: EOSINOPHILIC PUSTULOSIS
  3. DIAMINODIPHENYLSULFONE [DAPSONE] [Suspect]
     Active Substance: DAPSONE
     Indication: NEUTROPHILIC DERMATOSIS
     Dosage: 50 MILLIGRAM DAILY;
     Route: 065

REACTIONS (3)
  - Eosinophilic pustulosis [Unknown]
  - Drug ineffective [Unknown]
  - Neutrophilic dermatosis [Unknown]
